FAERS Safety Report 4598621-9 (Version None)
Quarter: 2005Q1

REPORT INFORMATION
  Report Type: 
  Country: None (occurrence: None)
  Receive Date: 20050207
  Receipt Date: 20040729
  Transmission Date: 20050727
  Serious: Yes (Other)
  Sender: FDA-Public Use
  Company Number: PROG00204002555

PATIENT
  Age: 61 Year
  Sex: Female
  Weight: 59.874 kg

DRUGS (3)
  1. PROMETRIUM [Suspect]
     Indication: HORMONE REPLACEMENT THERAPY
     Dosage: 100 MILLIGAM(S) DAILY ORAL
     Route: 048
     Dates: start: 20040610, end: 20040725
  2. MENEST [Concomitant]
  3. LIPITOR [Concomitant]

REACTIONS (1)
  - MIGRAINE [None]
